FAERS Safety Report 9363064 (Version 1)
Quarter: 2013Q2

REPORT INFORMATION
  Report Type: Spontaneous
  Country: US (occurrence: US)
  Receive Date: 20130624
  Receipt Date: 20130624
  Transmission Date: 20140414
  Serious: No
  Sender: FDA-Public Use
  Company Number: US-PFIZER INC-2013185975

PATIENT
  Age: 49 Year
  Sex: Female

DRUGS (15)
  1. XELJANZ [Suspect]
     Dosage: 5 MG, 2X/DAY
     Route: 048
  2. PLAQUENIL [Concomitant]
     Dosage: 200 MG, UNK
  3. METHOTREXATE [Concomitant]
     Dosage: 2.5 MG, UNK
  4. FOLIC ACID [Concomitant]
     Dosage: 1 MG, UNK
  5. NOVOLOG [Concomitant]
     Dosage: UNK
  6. OMEPRAZOLE [Concomitant]
     Dosage: 40 MG, UNK
  7. LEVOTHYROXINE [Concomitant]
     Dosage: 100 UG, UNK
  8. CRESTOR [Concomitant]
     Dosage: 10 MG, UNK
  9. TRILIPIX [Concomitant]
     Dosage: 135 MG, UNK
  10. CELEXA [Concomitant]
     Dosage: 40 MG, UNK
  11. AMBIEN CR [Concomitant]
     Dosage: 12.5 MG, UNK
  12. VITAMIN D [Concomitant]
     Dosage: 50000 IU, UNK
  13. METOPROLOL TARTRATE [Concomitant]
     Dosage: 50 MG, UNK
  14. ALEVE [Concomitant]
     Dosage: 220 MG, UNK
  15. ORABASE [Concomitant]
     Dosage: UNK

REACTIONS (1)
  - Headache [Unknown]
